FAERS Safety Report 5103818-5 (Version None)
Quarter: 2006Q3

REPORT INFORMATION
  Report Type: 
  Country: None (occurrence: None)
  Receive Date: 20060802
  Receipt Date: 20051107
  Transmission Date: 20061208
  Serious: Yes (Other)
  Sender: FDA-Public Use
  Company Number: US-JNJFOC-20051100607

PATIENT
  Age: 2 Year
  Sex: Male

DRUGS (1)
  1. ACETAMINOPHEN [Suspect]
     Indication: DRUG USE FOR UNKNOWN INDICATION
     Dosage: ^NEVER SWALLOWED ANY OF THE TYLENOL^
     Dates: start: 20051027, end: 20051027

REACTIONS (1)
  - ACCIDENTAL DRUG INTAKE BY CHILD [None]
